FAERS Safety Report 4690918-7 (Version None)
Quarter: 2005Q2

REPORT INFORMATION
  Report Type: 
  Country: None (occurrence: None)
  Receive Date: 20050610
  Receipt Date: 20050606
  Transmission Date: 20051028
  Serious: Yes (Hospitalization, Disabling)
  Sender: FDA-Public Use
  Company Number: 2005-129112-NL

PATIENT
  Sex: Male

DRUGS (5)
  1. MIRTAZAPINE [Suspect]
     Indication: DECREASED APPETITE
     Dosage: 30 MG ORAL
     Route: 048
     Dates: start: 20040201
  2. MIRTAZAPINE [Suspect]
     Indication: DEPRESSION
     Dosage: 30 MG ORAL
     Route: 048
     Dates: start: 20040201
  3. CALCIUM CARBONATE [Concomitant]
  4. PARACETAMOL [Concomitant]
  5. SIMVASTATIN [Concomitant]

REACTIONS (5)
  - ABNORMAL BEHAVIOUR [None]
  - AGGRESSION [None]
  - ANGER [None]
  - PERSONALITY CHANGE [None]
  - SCREAMING [None]
